FAERS Safety Report 19328511 (Version 1)
Quarter: 2021Q2

REPORT INFORMATION
  Report Type: Spontaneous
  Country: IN (occurrence: IN)
  Receive Date: 20210528
  Receipt Date: 20210528
  Transmission Date: 20210717
  Serious: Yes (Death, Hospitalization)
  Sender: FDA-Public Use
  Company Number: IN-MYLANLABS-2021M1031291

PATIENT
  Age: 54 Year
  Sex: Female

DRUGS (6)
  1. BORTEZOMIB. [Suspect]
     Active Substance: BORTEZOMIB
     Indication: PLASMA CELL MYELOMA
     Route: 065
     Dates: start: 201801
  2. DEXAMETHASONE. [Suspect]
     Active Substance: DEXAMETHASONE
     Dosage: 20 MILLIGRAM, QW, MAINTENANCE THERAPY
     Route: 065
     Dates: start: 2018
  3. BORTEZOMIB. [Suspect]
     Active Substance: BORTEZOMIB
     Dosage: MAINTENANCE THERAPY
     Route: 065
     Dates: start: 2018
  4. MELPHALAN. [Suspect]
     Active Substance: MELPHALAN
     Indication: IMMUNOSUPPRESSANT DRUG THERAPY
     Route: 065
     Dates: start: 2019
  5. CYCLOPHOSPHAMIDE. [Suspect]
     Active Substance: CYCLOPHOSPHAMIDE
     Indication: PLASMA CELL MYELOMA
     Route: 065
     Dates: start: 201801
  6. DEXAMETHASONE. [Suspect]
     Active Substance: DEXAMETHASONE
     Indication: PLASMA CELL MYELOMA
     Dosage: UNK
     Route: 065
     Dates: start: 201801

REACTIONS (10)
  - Acute respiratory failure [Fatal]
  - Shock [Fatal]
  - Diarrhoea [Unknown]
  - Acute kidney injury [Unknown]
  - Mucosal inflammation [Unknown]
  - Febrile neutropenia [Unknown]
  - Pulmonary alveolar haemorrhage [Unknown]
  - Lower respiratory tract infection [Fatal]
  - Metapneumovirus infection [Fatal]
  - Pneumonia [Unknown]

NARRATIVE: CASE EVENT DATE: 2019
